FAERS Safety Report 10617089 (Version 6)
Quarter: 2015Q2

REPORT INFORMATION
  Report Type: Spontaneous
  Country: GB (occurrence: GB)
  Receive Date: 20141201
  Receipt Date: 20150513
  Transmission Date: 20150821
  Serious: Yes (Hospitalization, Other)
  Sender: FDA-Public Use
  Company Number: GB-SA-2014SA160066

PATIENT
  Age: 71 Year
  Sex: Male

DRUGS (6)
  1. ENTOCORT [Suspect]
     Active Substance: BUDESONIDE
     Route: 048
  2. CLOPIDOGREL BISULFATE. [Suspect]
     Active Substance: CLOPIDOGREL BISULFATE
     Route: 065
  3. ASPIRIN. [Concomitant]
     Active Substance: ASPIRIN
  4. OMEPRAZOLE. [Suspect]
     Active Substance: OMEPRAZOLE
     Indication: ABDOMINAL PAIN UPPER
     Route: 065
     Dates: start: 20141018
  5. BUSCOPAN [Suspect]
     Active Substance: BUTYLSCOPOLAMINE BROMIDE
     Indication: ABDOMINAL PAIN UPPER
     Route: 065
     Dates: start: 20141018
  6. AZATHIOPRINE. [Suspect]
     Active Substance: AZATHIOPRINE
     Route: 065

REACTIONS (5)
  - Dry mouth [Unknown]
  - Migraine with aura [Unknown]
  - Abdominal pain upper [Unknown]
  - Photopsia [Unknown]
  - Blindness [Unknown]

NARRATIVE: CASE EVENT DATE: 201410
